FAERS Safety Report 25577503 (Version 4)
Quarter: 2025Q3

REPORT INFORMATION
  Report Type: Report from Study
  Country: US (occurrence: US)
  Receive Date: 20250718
  Receipt Date: 20250822
  Transmission Date: 20251020
  Serious: Yes (Other)
  Sender: XERIS PHARMACEUTICALS
  Company Number: US-BRIAN CONNER SVP QUALITY AND CHIEF COMPLIANCE OFFICER-2025XER00473

PATIENT
  Sex: Female

DRUGS (3)
  1. KEVEYIS [Suspect]
     Active Substance: DICHLORPHENAMIDE
     Indication: Paralysis
     Dosage: 25 MG, 1X/DAY
     Route: 065
     Dates: start: 20250628, end: 2025
  2. KEVEYIS [Suspect]
     Active Substance: DICHLORPHENAMIDE
     Dosage: 50 MG, 1X/DAY
     Route: 048
     Dates: start: 2025, end: 20250813
  3. DIAMOX SEQUELS [Suspect]
     Active Substance: ACETAZOLAMIDE
     Route: 065
     Dates: start: 202506

REACTIONS (9)
  - Neuropathy peripheral [Unknown]
  - Deafness [Unknown]
  - Paraesthesia [Unknown]
  - Joint instability [Not Recovered/Not Resolved]
  - Balance disorder [Unknown]
  - Ear discomfort [Recovered/Resolved]
  - Fatigue [Not Recovered/Not Resolved]
  - Fall [Unknown]
  - Unevaluable event [Not Recovered/Not Resolved]

NARRATIVE: CASE EVENT DATE: 20250101
